FAERS Safety Report 9357321 (Version 2)
Quarter: 2013Q3

REPORT INFORMATION
  Report Type: Spontaneous
  Country: BR (occurrence: BR)
  Receive Date: 20130620
  Receipt Date: 20130802
  Transmission Date: 20140515
  Serious: Yes (Other)
  Sender: FDA-Public Use
  Company Number: BR-AMGEN-BRASP2013043044

PATIENT
  Age: 52 Year
  Sex: Male
  Weight: 45 kg

DRUGS (2)
  1. ENBREL [Suspect]
     Indication: ANKYLOSING SPONDYLITIS
     Dosage: 50 MG, ONCE WEEKLY
     Route: 058
     Dates: start: 201110
  2. MELOXICAM [Concomitant]
     Dosage: UNK

REACTIONS (3)
  - Arthropathy [Unknown]
  - Pain [Unknown]
  - Swelling [Unknown]
